FAERS Safety Report 6974907-5 (Version None)
Quarter: 2010Q3

REPORT INFORMATION
  Report Type: 
  Country: None (occurrence: None)
  Receive Date: 20100909
  Receipt Date: 20090216
  Transmission Date: 20110219
  Serious: No
  Sender: FDA-Public Use
  Company Number: US-WYE-H07536809

PATIENT
  Sex: Female
  Weight: 61.29 kg

DRUGS (2)
  1. PRISTIQ [Suspect]
     Indication: DEPRESSION
     Route: 048
     Dates: start: 20081126, end: 20090103
  2. LAMOTRIGINE [Concomitant]

REACTIONS (3)
  - DENTAL CARIES [None]
  - DRY MOUTH [None]
  - OROPHARYNGEAL PAIN [None]
